FAERS Safety Report 25889554 (Version 1)
Quarter: 2025Q4

REPORT INFORMATION
  Report Type: Report from Study
  Country: CA (occurrence: CA)
  Receive Date: 20251007
  Receipt Date: 20251007
  Transmission Date: 20260117
  Serious: Yes (Other)
  Sender: ABBVIE
  Company Number: CA-ABBVIE-6340689

PATIENT
  Age: 50 Year
  Sex: Female

DRUGS (3)
  1. SKYRIZI [Suspect]
     Active Substance: RISANKIZUMAB-RZAA
     Indication: Crohn^s disease
     Dosage: INJECT THE CONTENTS OF 1 CARTRIDGE 360MG SUBCUTANEOUSLY EVERY 8 WEEKS. STRENGTH 360MG/2.4ML
     Route: 058
  2. METHOTREXATE [Suspect]
     Active Substance: METHOTREXATE
     Indication: Product used for unknown indication
     Route: 065
     Dates: end: 202505
  3. BUDESONIDE [Concomitant]
     Active Substance: BUDESONIDE
     Indication: Product used for unknown indication
     Dosage: 6-9MG DAILY PRN FOR 1 WEEK, AS NEEDED EVERY FEW?WEEKS.

REACTIONS (10)
  - Nephrolithiasis [Recovered/Resolved]
  - Ileal ulcer [Unknown]
  - Gastrointestinal oedema [Unknown]
  - Gastrointestinal mucosa hyperaemia [Unknown]
  - Enteritis [Unknown]
  - Intestinal anastomosis complication [Unknown]
  - Adverse drug reaction [Unknown]
  - Crohn^s disease [Unknown]
  - Frequent bowel movements [Unknown]
  - Malaise [Unknown]

NARRATIVE: CASE EVENT DATE: 20250401
